FAERS Safety Report 6161751-4 (Version None)
Quarter: 2009Q2

REPORT INFORMATION
  Report Type: 
  Country: None (occurrence: None)
  Receive Date: 20090421
  Receipt Date: 20090410
  Transmission Date: 20091009
  Serious: Yes (Other)
  Sender: FDA-Public Use
  Company Number: US-ROCHE-615786

PATIENT
  Age: 77 Year
  Sex: Female

DRUGS (3)
  1. BONIVA [Suspect]
     Indication: OSTEOPOROSIS
     Route: 042
     Dates: start: 20081201
  2. ACIPHEX [Concomitant]
  3. SYNTHROID [Concomitant]

REACTIONS (2)
  - BLOOD CALCIUM INCREASED [None]
  - NEPHROLITHIASIS [None]
